FAERS Safety Report 22961479 (Version 4)
Quarter: 2024Q1

REPORT INFORMATION
  Report Type: Spontaneous
  Country: US (occurrence: US)
  Receive Date: 20230920
  Receipt Date: 20240307
  Transmission Date: 20240409
  Serious: No
  Sender: FDA-Public Use
  Company Number: US-SA-SAC20230919000954

PATIENT
  Age: 3 Year
  Sex: Male

DRUGS (1)
  1. DUPIXENT [Suspect]
     Active Substance: DUPILUMAB
     Indication: Dermatitis allergic
     Dosage: 300 MG, Q4W
     Route: 058
     Dates: end: 20230915

REACTIONS (11)
  - Malaise [Unknown]
  - Vomiting [Unknown]
  - Dry skin [Not Recovered/Not Resolved]
  - Skin disorder [Not Recovered/Not Resolved]
  - Skin hyperpigmentation [Unknown]
  - Arthritis [Recovering/Resolving]
  - Pain of skin [Recovering/Resolving]
  - Skin exfoliation [Unknown]
  - Eczema [Unknown]
  - Dermatitis allergic [Unknown]
  - Condition aggravated [Unknown]
